FAERS Safety Report 10060829 (Version 2)
Quarter: 2014Q2

REPORT INFORMATION
  Report Type: Spontaneous
  Country: US (occurrence: US)
  Receive Date: 20140404
  Receipt Date: 20140408
  Transmission Date: 20141212
  Serious: No
  Sender: FDA-Public Use
  Company Number: US-009507513-1404USA002924

PATIENT
  Sex: 0

DRUGS (2)
  1. ASMANEX TWISTHALER [Suspect]
     Dosage: 220 MCG, BID, 1 SPRAY TWICW A DAY, (60 DOSES) 1 STD PACKAGE CANISTER OF 1, ASMANEX WITH WHITE CAP.
     Route: 055
     Dates: start: 201403
  2. ASMANEX TWISTHALER [Suspect]
     Dosage: 220 MCG, BID, 1 SPRAY TWICW A DAY, (60 DOSES) 1 STD PACKAGE CANISTER OF 1, ASMANEX WITH PINK BASE.
     Route: 055

REACTIONS (3)
  - Drug dose omission [Unknown]
  - Product quality issue [Unknown]
  - No adverse event [Unknown]
